FAERS Safety Report 7736963-6 (Version None)
Quarter: 2011Q3

REPORT INFORMATION
  Report Type: 
  Country: None (occurrence: None)
  Receive Date: 20110908
  Receipt Date: 20110830
  Transmission Date: 20111222
  Serious: Yes (Hospitalization, Disabling, Other)
  Sender: FDA-Public Use
  Company Number: EC-ROCHE-799780

PATIENT
  Sex: Female
  Weight: 62.6 kg

DRUGS (1)
  1. XENICAL [Suspect]
     Indication: OVERWEIGHT
     Route: 048
     Dates: start: 20110702, end: 20110827

REACTIONS (5)
  - PYREXIA [None]
  - CHILLS [None]
  - LIVER ABSCESS [None]
  - ABDOMINAL PAIN [None]
  - JAUNDICE [None]
